FAERS Safety Report 11427583 (Version 3)
Quarter: 2017Q3

REPORT INFORMATION
  Report Type: Spontaneous
  Country: US (occurrence: US)
  Receive Date: 20150827
  Receipt Date: 20170829
  Transmission Date: 20171127
  Serious: No
  Sender: FDA-Public Use
  Company Number: US-SA-2015SA047533

PATIENT
  Age: 79 Year
  Sex: Female

DRUGS (3)
  1. TOPROL XL [Concomitant]
     Active Substance: METOPROLOL SUCCINATE
  2. AVAPRO [Suspect]
     Active Substance: IRBESARTAN
     Indication: HYPERTENSION
     Route: 065
     Dates: start: 2000
  3. AVAPRO [Suspect]
     Active Substance: IRBESARTAN
     Indication: HYPERTENSION
     Route: 065

REACTIONS (5)
  - Arthritis [Recovering/Resolving]
  - Oedema peripheral [Recovering/Resolving]
  - Weight increased [Recovering/Resolving]
  - Dyspepsia [Recovering/Resolving]
  - Wrong technique in product usage process [Unknown]
